FAERS Safety Report 8580312-0 (Version None)
Quarter: 2012Q3

REPORT INFORMATION
  Report Type: 
  Country: None (occurrence: None)
  Receive Date: 20120808
  Receipt Date: 20120507
  Transmission Date: 20120928
  Serious: Yes (Death, Other)
  Sender: FDA-Public Use
  Company Number: CO-PFIZER INC-2012190949

PATIENT
  Age: 52 Year
  Sex: Male

DRUGS (4)
  1. INSULIN HUMAN INJECTION, ISOPHANE AND INSULIN HUMAN ZINC SUSPENSION [Concomitant]
     Dosage: 20 IU, EVERY 8 HOURS
  2. LIPITOR [Suspect]
     Indication: DYSLIPIDAEMIA
     Dosage: 10 MG, EVERY 24 HOURS
  3. ASPIRIN [Concomitant]
     Dosage: 100 MG, EVERY 24 HOURS
  4. FUROSEMIDE [Concomitant]
     Dosage: 40 MG, EVERY 24 HOURS

REACTIONS (4)
  - RENAL FAILURE CHRONIC [None]
  - HYPERTENSIVE EMERGENCY [None]
  - SUDDEN CARDIAC DEATH [None]
  - ACUTE MYOCARDIAL INFARCTION [None]
